FAERS Safety Report 4448623-8 (Version None)
Quarter: 2004Q3

REPORT INFORMATION
  Report Type: 
  Country: None (occurrence: None)
  Receive Date: 20040909
  Receipt Date: 20040909
  Transmission Date: 20050211
  Serious: Yes (Other)
  Sender: FDA-Public Use
  Company Number: None

PATIENT
  Age: 9 Year
  Sex: Male
  Weight: 27.6694 kg

DRUGS (1)
  1. COMPOUND W FREEZE OFF MED TECH [Suspect]
     Indication: SKIN PAPILLOMA
     Dosage: ONCE TOPICAL TOPICAL
     Route: 061
     Dates: start: 20040830, end: 20040830

REACTIONS (1)
  - PAIN [None]
